FAERS Safety Report 8069678-8 (Version None)
Quarter: 2012Q1

REPORT INFORMATION
  Report Type: 
  Country: None (occurrence: None)
  Receive Date: 20120125
  Receipt Date: 20120123
  Transmission Date: 20120608
  Serious: Yes (Death)
  Sender: FDA-Public Use
  Company Number: US-B.I. PHARMACEUTICALS,INC./RIDGEFIELD-2012-BP-01337BP

PATIENT
  Age: 95 Year
  Sex: Male

DRUGS (14)
  1. ASPIRIN [Concomitant]
     Dosage: 81 MG
     Route: 048
     Dates: start: 20110701
  2. FUROSEMIDE [Concomitant]
     Dosage: 80 MG
     Route: 048
     Dates: start: 20110701
  3. LISINOPRIL [Concomitant]
     Dosage: 5 MG
     Route: 048
     Dates: start: 20110701
  4. VITAMIN-MINERAL COMPOUND TAB [Concomitant]
     Indication: MACULAR DEGENERATION
     Dosage: 452 MG
     Route: 048
     Dates: start: 20110701
  5. LEVOTHYROXINE SODIUM [Concomitant]
     Dosage: 0.05 MG
     Route: 048
     Dates: start: 20110701
  6. PREDNISONE TAB [Concomitant]
     Dosage: 5 MG
     Route: 048
     Dates: start: 20110701
  7. METOPROLOL [Concomitant]
     Dosage: 50 MG
     Route: 048
     Dates: start: 20110701
  8. PREDNISONE TAB [Concomitant]
     Dosage: 15 MG
     Route: 048
     Dates: start: 20110701
  9. PREDNISONE TAB [Concomitant]
     Dosage: 10 MG
     Route: 048
     Dates: start: 20110701
  10. ALLOPURINOL [Concomitant]
     Dosage: 300 MG
     Route: 042
     Dates: start: 20110701
  11. PRADAXA [Suspect]
     Indication: ATRIAL FIBRILLATION
     Dosage: 300 MG
     Route: 048
     Dates: start: 20111001, end: 20111201
  12. POTASSIUM CHLORIDE [Concomitant]
     Dosage: 40 MEQ
     Route: 048
     Dates: start: 20110701
  13. DIGOXIN [Concomitant]
     Dosage: 0.375 MCG
     Route: 048
     Dates: start: 20110701
  14. PREDNISONE TAB [Concomitant]
     Dosage: 20 MG
     Route: 048
     Dates: start: 20110701

REACTIONS (2)
  - MELAENA [None]
  - HAEMORRHAGE [None]
